FAERS Safety Report 17324148 (Version 1)
Quarter: 2020Q1

REPORT INFORMATION
  Report Type: Spontaneous
  Country: FR (occurrence: FR)
  Receive Date: 20200127
  Receipt Date: 20200127
  Transmission Date: 20200409
  Serious: Yes (Other)
  Sender: FDA-Public Use
  Company Number: FR-TEVA-2020-FR-1173567

PATIENT
  Age: 60 Year
  Sex: Male
  Weight: 53 kg

DRUGS (1)
  1. NAPROXENE [Suspect]
     Active Substance: NAPROXEN
     Indication: PAIN
     Route: 048
     Dates: start: 20170707, end: 20170709

REACTIONS (6)
  - Vomiting [Recovered/Resolved]
  - Pyrexia [Recovered/Resolved]
  - Septic shock [Recovered/Resolved]
  - Diarrhoea [Recovered/Resolved]
  - Abdominal pain upper [Recovered/Resolved]
  - Weight decreased [Recovered/Resolved]

NARRATIVE: CASE EVENT DATE: 20170710
